FAERS Safety Report 13439290 (Version 1)
Quarter: 2017Q2

REPORT INFORMATION
  Report Type: Spontaneous
  Country: US (occurrence: US)
  Receive Date: 20170413
  Receipt Date: 20170413
  Transmission Date: 20170830
  Serious: Yes (Life-Threatening)
  Sender: FDA-Public Use
  Company Number: US-BAYER-2017-066941

PATIENT
  Age: 59 Year
  Sex: Male

DRUGS (10)
  1. SALINE [SODIUM CHLORIDE] [Concomitant]
     Active Substance: SODIUM CHLORIDE
  2. NALOXONE [Concomitant]
     Active Substance: NALOXONE
  3. DEXTROSE. [Concomitant]
     Active Substance: DEXTROSE
  4. VANCOMYCIN [Concomitant]
     Active Substance: VANCOMYCIN
  5. ACETYLSALICYLIC ACID (} 100 MG) [Suspect]
     Active Substance: ASPIRIN
  6. ALCOHOL. [Concomitant]
     Active Substance: ALCOHOL
  7. SODIUM BICARBONATE. [Concomitant]
     Active Substance: SODIUM BICARBONATE
  8. ALPRAZOLAM. [Concomitant]
     Active Substance: ALPRAZOLAM
  9. AZITHROMYCIN ANHYDROUS. [Concomitant]
     Active Substance: AZITHROMYCIN ANHYDROUS
  10. CEFTRIAXONE. [Concomitant]
     Active Substance: CEFTRIAXONE

REACTIONS (4)
  - Intentional self-injury [None]
  - Pneumonia aspiration [None]
  - Intentional overdose [None]
  - Analgesic drug level increased [None]
